FAERS Safety Report 7980776-7 (Version None)
Quarter: 2011Q4

REPORT INFORMATION
  Report Type: 
  Country: None (occurrence: None)
  Receive Date: 20111214
  Receipt Date: 20111207
  Transmission Date: 20120403
  Serious: Yes (Other)
  Sender: FDA-Public Use
  Company Number: JP-B.I. PHARMACEUTICALS,INC./RIDGEFIELD-2011-EU-01009GD

PATIENT
  Sex: Female

DRUGS (1)
  1. TELMISARTAN [Suspect]

REACTIONS (4)
  - HYPONATRAEMIA [None]
  - HYPERKALAEMIA [None]
  - NASOPHARYNGITIS [None]
  - RENAL FAILURE ACUTE [None]
